FAERS Safety Report 8900595 (Version 1)
Quarter: 2012Q4

REPORT INFORMATION
  Report Type: 
  Country: CA (occurrence: CA)
  Receive Date: 20121109
  Receipt Date: 20121109
  Transmission Date: 20130627
  Serious: Yes (Hospitalization, Other)
  Sender: FDA-Public Use
  Company Number: PHHO2005CA14434

PATIENT
  Sex: Male

DRUGS (10)
  1. SANDOSTATIN LAR (PATIENT BASIS) [Suspect]
     Indication: ANGIODYSPLASIA
     Dosage: 30 mg, UNK
     Dates: start: 20050815, end: 20051109
  2. ALLOPURINOL [Concomitant]
  3. ELTROXIN [Concomitant]
  4. PANTOLOC [Concomitant]
  5. IRON [Concomitant]
  6. HYDROXYUREA [Concomitant]
  7. FLUCONAZOLE [Concomitant]
  8. EPREX [Concomitant]
  9. TYLENOL [Concomitant]
  10. LACTULOSE [Concomitant]

REACTIONS (18)
  - Gastrointestinal haemorrhage [Not Recovered/Not Resolved]
  - Melaena [Unknown]
  - Haemoglobin decreased [Unknown]
  - Nephropathy toxic [Not Recovered/Not Resolved]
  - Liver disorder [Not Recovered/Not Resolved]
  - Muscle spasms [Unknown]
  - Oedema peripheral [Unknown]
  - Back pain [Unknown]
  - Blood glucose increased [Unknown]
  - Contusion [Unknown]
  - Blood pressure increased [Unknown]
  - Laceration [Unknown]
  - Blood creatinine increased [Unknown]
  - Somnolence [Unknown]
  - Abdominal pain [Unknown]
  - Diarrhoea [Unknown]
  - Asthenia [Unknown]
  - Heart rate increased [Unknown]
